FAERS Safety Report 14502059 (Version 2)
Quarter: 2018Q2

REPORT INFORMATION
  Report Type: Spontaneous
  Country: CA (occurrence: CA)
  Receive Date: 20180208
  Receipt Date: 20180518
  Transmission Date: 20180711
  Serious: Yes (Disabling, Other)
  Sender: FDA-Public Use
  Company Number: CA-ORION CORPORATION ORION PHARMA-TREX2018-0362

PATIENT
  Age: 33 Year
  Sex: Male
  Weight: 91 kg

DRUGS (1)
  1. METHOTREXATE (TRADE NAME UNKNOWN) [Suspect]
     Active Substance: METHOTREXATE
     Indication: RHEUMATOID ARTHRITIS
     Route: 065

REACTIONS (6)
  - Drug hypersensitivity [Unknown]
  - Drug ineffective [Not Recovered/Not Resolved]
  - Rash [Not Recovered/Not Resolved]
  - Drug intolerance [Unknown]
  - Lung disorder [Unknown]
  - Lung infection [Unknown]
